FAERS Safety Report 13509999 (Version 2)
Quarter: 2017Q3

REPORT INFORMATION
  Report Type: Spontaneous
  Country: US (occurrence: US)
  Receive Date: 20170503
  Receipt Date: 20170928
  Transmission Date: 20171127
  Serious: Yes (Other)
  Sender: FDA-Public Use
  Company Number: US-SA-2017SA061266

PATIENT
  Age: 72 Year
  Sex: Male
  Weight: 66 kg

DRUGS (2)
  1. PRALUENT [Suspect]
     Active Substance: ALIROCUMAB
     Route: 058
     Dates: start: 20170303, end: 20170323
  2. ALIROCUMAB PREFILLED PEN [Suspect]
     Active Substance: ALIROCUMAB
     Dates: start: 20170303, end: 20170323

REACTIONS (8)
  - Muscle spasms [Unknown]
  - Swollen tongue [Unknown]
  - Rectal haemorrhage [Unknown]
  - Peripheral swelling [Unknown]
  - Pruritus [Unknown]
  - Facial pain [Unknown]
  - Feeling of body temperature change [Unknown]
  - Headache [Unknown]

NARRATIVE: CASE EVENT DATE: 20170306
